FAERS Safety Report 8480094-7 (Version None)
Quarter: 2012Q2

REPORT INFORMATION
  Report Type: 
  Country: None (occurrence: None)
  Receive Date: 20120629
  Receipt Date: 20120619
  Transmission Date: 20120825
  Serious: Yes (Hospitalization)
  Sender: FDA-Public Use
  Company Number: US-ELI_LILLY_AND_COMPANY-US201206007340

PATIENT
  Sex: Female

DRUGS (6)
  1. VITAMIN D [Concomitant]
     Dosage: UNK
  2. PRAVASTATIN [Concomitant]
     Dosage: UNK
  3. LEVOTHYROXINE [Concomitant]
     Dosage: UNK
  4. FORTEO [Suspect]
     Indication: OSTEOPOROSIS
     Dosage: 20 UG, QD
  5. NEURONTIN [Concomitant]
     Dosage: UNK
  6. CYMBALTA [Concomitant]
     Indication: DEPRESSION
     Dosage: UNK

REACTIONS (4)
  - FALL [None]
  - SOMNOLENCE [None]
  - MOBILITY DECREASED [None]
  - OVERDOSE [None]
